FAERS Safety Report 11254268 (Version 1)
Quarter: 2015Q3

REPORT INFORMATION
  Report Type: Spontaneous
  Country: US (occurrence: US)
  Receive Date: 20150709
  Receipt Date: 20150709
  Transmission Date: 20151125
  Serious: Yes (Other)
  Sender: FDA-Public Use
  Company Number: US-PFIZER INC-2015225452

PATIENT
  Age: 75 Year
  Sex: Male
  Weight: 136 kg

DRUGS (1)
  1. TIKOSYN [Suspect]
     Active Substance: DOFETILIDE
     Indication: ATRIAL FIBRILLATION
     Dosage: 500 ?G, 2X/DAY
     Dates: start: 201309, end: 201505

REACTIONS (1)
  - Cataract [Unknown]
